APPROVED DRUG PRODUCT: CICLOPIROX
Active Ingredient: CICLOPIROX
Strength: 0.77%
Dosage Form/Route: CREAM;TOPICAL
Application: A090273 | Product #001 | TE Code: AB
Applicant: GLENMARK PHARMACEUTICALS INC USA
Approved: Nov 10, 2009 | RLD: No | RS: No | Type: RX